FAERS Safety Report 11427901 (Version 1)
Quarter: 2015Q3

REPORT INFORMATION
  Report Type: Spontaneous
  Country: CH (occurrence: None)
  Receive Date: 20150826
  Receipt Date: 20150826
  Transmission Date: 20151125
  Serious: Yes (Hospitalization)
  Sender: FDA-Public Use
  Company Number: CH-2015VAL000530

PATIENT
  Age: 68 Year
  Sex: Male
  Weight: 101 kg

DRUGS (10)
  1. SINTROM (ACENOCOUMAROL) [Suspect]
     Active Substance: ACENOCOUMAROL
     Indication: ATRIAL FIBRILLATION
  2. ALLOPUR (NGX) (ALLOPURINOL) [Suspect]
     Active Substance: ALLOPURINOL
     Indication: PRODUCT USED FOR UNKNOWN INDICATION
     Route: 048
     Dates: end: 20150506
  3. PANTOZOL [Suspect]
     Active Substance: PANTOPRAZOLE SODIUM
     Indication: PRODUCT USED FOR UNKNOWN INDICATION
     Route: 048
     Dates: end: 20150506
  4. COSOPT S (DORZOLAMIDE HYDROCHLORIDE, TIMOLOL MALEATE) [Concomitant]
  5. TOREM (TORASEMIDE) [Suspect]
     Active Substance: TORSEMIDE
     Indication: PRODUCT USED FOR UNKNOWN INDICATION
     Route: 048
     Dates: end: 20150521
  6. METOPROLOL TARTRATE (METOPROLOL TARTRATE) UNKNOWN [Suspect]
     Active Substance: METOPROLOL TARTRATE
     Indication: HYPERTENSION
     Route: 048
  7. CYMBALTA [Suspect]
     Active Substance: DULOXETINE HYDROCHLORIDE
     Indication: PRODUCT USED FOR UNKNOWN INDICATION
     Route: 048
     Dates: end: 20150506
  8. CHELIDONINE (CHELIDONINE) [Suspect]
     Active Substance: CHELIDONINE
     Indication: DYSPEPSIA
     Route: 048
     Dates: start: 201504, end: 201505
  9. NOZINAN (LEVOMEPROMAZINE) FILM-COATED TABLET, 100MG [Suspect]
     Active Substance: LEVOMEPROMAZINE
     Indication: PRODUCT USED FOR UNKNOWN INDICATION
     Route: 048
     Dates: start: 20150506
  10. TIMOGEL (TIMOLOL MALEATE) [Concomitant]

REACTIONS (5)
  - Hepatitis toxic [None]
  - Jaundice cholestatic [None]
  - Drug-induced liver injury [None]
  - Hepatic cirrhosis [None]
  - Hepatitis cholestatic [None]

NARRATIVE: CASE EVENT DATE: 20150502
